FAERS Safety Report 5563414-2 (Version None)
Quarter: 2007Q4

REPORT INFORMATION
  Report Type: 
  Country: None (occurrence: None)
  Receive Date: 20071217
  Receipt Date: 20070919
  Transmission Date: 20080405
  Serious: Yes (Other)
  Sender: FDA-Public Use
  Company Number: US-ASTRAZENECA-2005UW01326

PATIENT
  Age: 72 Year
  Sex: Male
  Weight: 86.2 kg

DRUGS (16)
  1. CRESTOR [Suspect]
     Indication: BLOOD CHOLESTEROL INCREASED
     Route: 048
     Dates: start: 20041101, end: 20050101
  2. CRESTOR [Suspect]
     Route: 048
     Dates: start: 20050101, end: 20070906
  3. AVALIDE [Concomitant]
  4. NORVASC [Concomitant]
  5. TOPROL-XL [Concomitant]
     Indication: ARRHYTHMIA
     Route: 048
  6. FELODIPINE [Concomitant]
     Indication: BLOOD PRESSURE
  7. WARFARIN SODIUM [Concomitant]
  8. POLICOSANOL [Concomitant]
  9. COEZNYME Q10 [Concomitant]
  10. VITAMIN B COMPLEX CAP [Concomitant]
  11. ASCORBIC ACID [Concomitant]
  12. VITAMIN D [Concomitant]
  13. VITAMIN E [Concomitant]
  14. BETA CAROTENE [Concomitant]
  15. NIACIN [Concomitant]
  16. NIACIN [Concomitant]
     Dates: start: 20060301

REACTIONS (2)
  - ARTHRALGIA [None]
  - MYALGIA [None]
